FAERS Safety Report 16769299 (Version 13)
Quarter: 2020Q1

REPORT INFORMATION
  Report Type: Report from Study
  Country: DE (occurrence: DE)
  Receive Date: 20190903
  Receipt Date: 20200124
  Transmission Date: 20200409
  Serious: Yes (Life-Threatening, Hospitalization, Other)
  Sender: FDA-Public Use
  Company Number: DE-OTSUKA-2019_030721

PATIENT
  Age: 56 Year
  Sex: Male
  Weight: 84.4 kg

DRUGS (13)
  1. VITAMIN D [Concomitant]
     Active Substance: VITAMIN D NOS
     Indication: VITAMIN D DEFICIENCY
     Dosage: 20000 IU, EVERY 4 WEEKS
     Route: 065
  2. BREXPIPRAZOLE [Suspect]
     Active Substance: BREXPIPRAZOLE
     Indication: ADJUVANT THERAPY
     Dosage: 2 MG, QD (1-0-0)
     Route: 048
     Dates: start: 20190626, end: 20190825
  3. BREXPIPRAZOLE [Suspect]
     Active Substance: BREXPIPRAZOLE
     Dosage: 1 MG, QD (1-0-0)
     Route: 048
     Dates: start: 20190619, end: 20190625
  4. TELMISARTAN. [Concomitant]
     Active Substance: TELMISARTAN
     Indication: HYPERTENSION
     Dosage: 80/25 MG, QD (1X1/2)
     Route: 048
     Dates: start: 2014
  5. OMEPRAZOLE. [Concomitant]
     Active Substance: OMEPRAZOLE
     Indication: GASTROOESOPHAGEAL REFLUX DISEASE
     Dosage: 40 MG, QD
     Route: 048
     Dates: start: 2009, end: 201908
  6. DULOXETINE. [Suspect]
     Active Substance: DULOXETINE
     Indication: MAJOR DEPRESSION
     Dosage: 60 MG, QD (1-0-0)
     Route: 065
     Dates: start: 201804, end: 20190826
  7. FUROSEMIDE. [Concomitant]
     Active Substance: FUROSEMIDE
     Indication: OEDEMA PERIPHERAL
     Dosage: 40 MG, BID
     Route: 048
     Dates: start: 20190529, end: 20190613
  8. BREXPIPRAZOLE [Suspect]
     Active Substance: BREXPIPRAZOLE
     Indication: MAJOR DEPRESSION
     Dosage: 0.5 MG, QD (1-0-0)
     Route: 048
     Dates: start: 20190612, end: 20190618
  9. BISOPROLOL [Concomitant]
     Active Substance: BISOPROLOL
     Dosage: 1.5 DF, QD (5 MG, 1-0-1/2)
     Route: 048
  10. TOREM [Concomitant]
     Active Substance: TORSEMIDE
     Indication: OEDEMA PERIPHERAL
     Dosage: 1.5 DF, QD (20 MG 1, 1/2 AND 0)
     Route: 048
     Dates: start: 20190614, end: 201908
  11. TELMISARTAN. [Concomitant]
     Active Substance: TELMISARTAN
     Dosage: 0.5 DF, QD (80/25 MG, 1/2, 0, 0, 0)
     Route: 048
     Dates: start: 2014, end: 201908
  12. BISOPROLOL [Concomitant]
     Active Substance: BISOPROLOL
     Indication: HYPERTENSION
     Dosage: 5 MG, BID (1-0-1)
     Route: 048
     Dates: start: 2012
  13. TOREM [Concomitant]
     Active Substance: TORSEMIDE
     Dosage: 1.5 DF, QD (10 MG 1, 1/2 AND 0)
     Route: 048
     Dates: start: 201909

REACTIONS (3)
  - Electrocardiogram QT prolonged [Recovered/Resolved]
  - Electrolyte imbalance [Recovered/Resolved with Sequelae]
  - Acute hepatic failure [Recovered/Resolved]

NARRATIVE: CASE EVENT DATE: 20190822
